FAERS Safety Report 7823880-6 (Version None)
Quarter: 2011Q4

REPORT INFORMATION
  Report Type: 
  Country: None (occurrence: None)
  Receive Date: 20111019
  Receipt Date: 20110803
  Transmission Date: 20120403
  Serious: No
  Sender: FDA-Public Use
  Company Number: US-ASTRAZENECA-2011SE40511

PATIENT
  Age: 54 Year
  Sex: Male

DRUGS (3)
  1. VENTOLIN [Concomitant]
  2. OXYGEN [Concomitant]
  3. SYMBICORT [Suspect]
     Route: 055

REACTIONS (4)
  - DRUG DOSE OMISSION [None]
  - CHRONIC OBSTRUCTIVE PULMONARY DISEASE [None]
  - MALAISE [None]
  - CHEST PAIN [None]
